FAERS Safety Report 26087267 (Version 1)
Quarter: 2025Q4

REPORT INFORMATION
  Report Type: Report from Study
  Country: US (occurrence: US)
  Receive Date: 20251125
  Receipt Date: 20251125
  Transmission Date: 20260117
  Serious: Yes (Other)
  Sender: VERONA PHARMA
  Company Number: US-VERONA PHARMA-VER-010585

PATIENT
  Sex: Male

DRUGS (4)
  1. OHTUVAYRE [Suspect]
     Active Substance: ENSIFENTRINE
     Indication: Chronic obstructive pulmonary disease
     Dosage: 3 MILLIGRAM, BID
     Dates: start: 202508
  2. BREZTRI [Concomitant]
     Active Substance: BUDESONIDE\FORMOTEROL\GLYCOPYRROLATE
     Indication: Product used for unknown indication
     Dosage: UNK
  3. DALIRESP [Concomitant]
     Active Substance: ROFLUMILAST
     Indication: Product used for unknown indication
     Dosage: 3-2.5MILLIGRAM PER MILLILITRE
     Dates: start: 202508, end: 20251029
  4. DALIRESP [Concomitant]
     Active Substance: ROFLUMILAST
     Dosage: 3 MILLIGRAM PER MILLILITRE, BID
     Dates: start: 20251030

REACTIONS (6)
  - Pulmonary oedema [Unknown]
  - Peripheral swelling [Unknown]
  - Dyspnoea [Unknown]
  - Lip blister [Unknown]
  - Blister [Unknown]
  - Constipation [Unknown]

NARRATIVE: CASE EVENT DATE: 20250101
